FAERS Safety Report 7029142-1 (Version None)
Quarter: 2010Q4

REPORT INFORMATION
  Report Type: 
  Country: None (occurrence: None)
  Receive Date: 20101005
  Receipt Date: 20100928
  Transmission Date: 20110411
  Serious: No
  Sender: FDA-Public Use
  Company Number: US-PFIZER INC-2010123595

PATIENT
  Sex: Female

DRUGS (8)
  1. CHANTIX [Suspect]
     Indication: SMOKING CESSATION THERAPY
     Dosage: 1 MG, 2X/DAY
     Route: 048
     Dates: start: 20100101
  2. CHANTIX [Suspect]
     Dosage: 0.5 MG, DAILY
  3. HUMALOG [Concomitant]
     Indication: DIABETES MELLITUS
     Dosage: AT A SLIDING SCALE FOUR TIME DAILY
     Route: 058
  4. LANTUS [Concomitant]
     Indication: DIABETES MELLITUS
     Dosage: 70 L, 2X/DAY
     Route: 058
  5. SITAGLIPTIN [Concomitant]
     Indication: DIABETES MELLITUS
     Dosage: 50 MG, DAILY
     Route: 048
  6. SACCHAROMYCES BOULARDII [Concomitant]
     Indication: NEPHROPATHY
     Dosage: 250 MG, 2X/DAY
     Route: 048
  7. RIFAXIMIN [Concomitant]
     Indication: LIVER DISORDER
     Dosage: 400 MG, 3X/DAY
     Route: 048
  8. MACROBID [Concomitant]
     Indication: NEPHROPATHY
     Dosage: 100 MG, 2X/DAY
     Route: 048

REACTIONS (5)
  - ANXIETY [None]
  - CRYING [None]
  - EUPHORIC MOOD [None]
  - FEELING ABNORMAL [None]
  - GRIEF REACTION [None]
